FAERS Safety Report 7337738-2 (Version None)
Quarter: 2011Q1

REPORT INFORMATION
  Report Type: 
  Country: None (occurrence: None)
  Receive Date: 20110308
  Receipt Date: 20110303
  Transmission Date: 20110831
  Serious: Yes (Disabling)
  Sender: FDA-Public Use
  Company Number: DE-ABBOTT-11P-062-0709270-00

PATIENT
  Age: 52 Year
  Sex: Male

DRUGS (3)
  1. PREGABALIN [Suspect]
     Indication: EPILEPSY
     Route: 048
     Dates: start: 20070101
  2. KEPPRA [Suspect]
     Indication: EPILEPSY
     Route: 048
     Dates: start: 20070101
  3. ERGENYL CHRONO TABLETS [Suspect]
     Indication: EPILEPSY
     Dosage: UNKNOWN: TABLET, EXTENDED RELEASE
     Route: 048
     Dates: start: 20050101

REACTIONS (3)
  - OPTIC ATROPHY [None]
  - VISUAL ACUITY REDUCED [None]
  - VISUAL FIELD DEFECT [None]
